FAERS Safety Report 15823512 (Version 1)
Quarter: 2019Q1

REPORT INFORMATION
  Report Type: Spontaneous
  Country: US (occurrence: US)
  Receive Date: 20190114
  Receipt Date: 20190114
  Transmission Date: 20190417
  Serious: Yes (Other)
  Sender: FDA-Public Use
  Company Number: US-NAPPMUNDI-USA-2019-0145631

PATIENT
  Age: 71 Year
  Sex: Male
  Weight: 104.31 kg

DRUGS (3)
  1. SUTENT [Suspect]
     Active Substance: SUNITINIB MALATE
     Indication: RENAL CELL CARCINOMA
     Dosage: 37.5 MG, DAILY FOR 2 WEEKS ON, ONE WEEK OFF
     Route: 065
     Dates: start: 201812
  2. OXYCONTIN [Suspect]
     Active Substance: OXYCODONE HYDROCHLORIDE
     Indication: PAIN
     Dosage: 10 MG, Q12H
     Route: 048
     Dates: start: 201801
  3. OXYCODONE HYDROCHLORIDE (SIMILAR TO NDA 22-272) [Suspect]
     Active Substance: OXYCODONE HYDROCHLORIDE
     Indication: PAIN
     Dosage: 5-10 MG, Q6H PRN
     Route: 048
     Dates: start: 201612

REACTIONS (9)
  - Pelvic operation [Recovered/Resolved]
  - Gait inability [Unknown]
  - Skin exfoliation [Not Recovered/Not Resolved]
  - Limb operation [Recovered/Resolved]
  - Constipation [Recovering/Resolving]
  - Memory impairment [Not Recovered/Not Resolved]
  - Pruritus [Not Recovered/Not Resolved]
  - Drug ineffective [Unknown]
  - Injury [Unknown]

NARRATIVE: CASE EVENT DATE: 201612
